FAERS Safety Report 14924582 (Version 2)
Quarter: 2018Q2

REPORT INFORMATION
  Report Type: Spontaneous
  Country: US (occurrence: US)
  Receive Date: 20180522
  Receipt Date: 20180530
  Transmission Date: 20180711
  Serious: No
  Sender: FDA-Public Use
  Company Number: US-PFIZER INC-2018206625

PATIENT
  Age: 71 Year
  Sex: Female
  Weight: 68.93 kg

DRUGS (2)
  1. VENLAFAXINE HCL [Suspect]
     Active Substance: VENLAFAXINE HYDROCHLORIDE
     Indication: ANXIETY
     Dosage: 225 MG, 1X/DAY (150MG CAPSULE AND 75MG CAPSULE FOR A TOTAL OF 225MG BY MOUTH ONCE A DAY)
     Route: 048
     Dates: start: 2007, end: 20180326
  2. GABAPENTIN. [Suspect]
     Active Substance: GABAPENTIN
     Dosage: 600 MG, 3X/DAY (THREE TIMES A DAY TAKEN AT 6,8 AND 10)
     Route: 048
     Dates: start: 2011

REACTIONS (5)
  - Memory impairment [Not Recovered/Not Resolved]
  - Intentional product misuse [Unknown]
  - Gait disturbance [Not Recovered/Not Resolved]
  - Dizziness [Not Recovered/Not Resolved]
  - Balance disorder [Not Recovered/Not Resolved]

NARRATIVE: CASE EVENT DATE: 20180502
